FAERS Safety Report 9892577 (Version 1)
Quarter: 2014Q1

REPORT INFORMATION
  Report Type: Spontaneous
  Country: IT (occurrence: IT)
  Receive Date: 20140212
  Receipt Date: 20140212
  Transmission Date: 20141002
  Serious: Yes (Hospitalization)
  Sender: FDA-Public Use
  Company Number: PHHY2014IT015275

PATIENT
  Age: 76 Year
  Sex: Female

DRUGS (8)
  1. LAMOTRIGINE [Suspect]
     Indication: EPILEPSY
     Dosage: 250 MG, QD
     Route: 048
  2. LANSOX [Concomitant]
     Route: 048
  3. DILATREND [Concomitant]
  4. LASIX [Concomitant]
  5. ENAPREN [Concomitant]
  6. ZOLOFT [Concomitant]
  7. TORVAST [Concomitant]
  8. CARDIOASPIRIN [Concomitant]

REACTIONS (2)
  - Cardiac failure [Recovered/Resolved]
  - Convulsion [Recovered/Resolved]
